FAERS Safety Report 13157197 (Version 1)
Quarter: 2017Q1

REPORT INFORMATION
  Report Type: Spontaneous
  Country: CA (occurrence: CA)
  Receive Date: 20170127
  Receipt Date: 20170127
  Transmission Date: 20170428
  Serious: Yes (Other)
  Sender: FDA-Public Use
  Company Number: CA-ASTRAZENECA-2017SE07925

PATIENT
  Age: 60 Year
  Sex: Female

DRUGS (1)
  1. FASLODEX [Suspect]
     Active Substance: FULVESTRANT
     Dosage: 1 DOSE EVERY 2 WEEKS X 2; THEN, EVERY 28 DAYS
     Route: 030
     Dates: start: 201610

REACTIONS (4)
  - Product use issue [Unknown]
  - Skin discolouration [Not Recovered/Not Resolved]
  - Skin discomfort [Not Recovered/Not Resolved]
  - Peripheral swelling [Not Recovered/Not Resolved]
